FAERS Safety Report 8341023-X (Version None)
Quarter: 2012Q2

REPORT INFORMATION
  Report Type: 
  Country: None (occurrence: None)
  Receive Date: 20120507
  Receipt Date: 20120502
  Transmission Date: 20120825
  Serious: Yes (Death)
  Sender: FDA-Public Use
  Company Number: US-BAYER-2012-040725

PATIENT
  Age: 66 Year
  Sex: Male

DRUGS (1)
  1. NEXAVAR [Suspect]
     Indication: MALIGNANT MELANOMA
     Dosage: 400 MG, BID
     Dates: start: 20120420

REACTIONS (5)
  - DEATH [None]
  - DYSPNOEA [None]
  - DIZZINESS [None]
  - ASTHENIA [None]
  - CHEST PAIN [None]
